FAERS Safety Report 16891358 (Version 1)
Quarter: 2019Q4

REPORT INFORMATION
  Report Type: Spontaneous
  Country: US (occurrence: US)
  Receive Date: 20190813
  Receipt Date: 20190813
  Transmission Date: 20200122
  Serious: Yes (Hospitalization)
  Sender: FDA-Public Use
  Company Number: None

PATIENT
  Age: 50 Year
  Sex: Female

DRUGS (7)
  1. FUROSEMIDE. [Concomitant]
     Active Substance: FUROSEMIDE
  2. GABAPENTIN. [Concomitant]
     Active Substance: GABAPENTIN
  3. ALPROAZOLAM [Concomitant]
  4. DIVALPROEX [Concomitant]
     Active Substance: DIVALPROEX SODIUM
  5. LYRICA [Concomitant]
     Active Substance: PREGABALIN
  6. METFORMIN [Concomitant]
     Active Substance: METFORMIN HYDROCHLORIDE
  7. GLATOPA [Suspect]
     Active Substance: GLATIRAMER ACETATE
     Indication: MULTIPLE SCLEROSIS
     Dosage: ?          OTHER FREQUENCY:EVERYM.W+F ;?
     Route: 058
     Dates: start: 20180727

REACTIONS (5)
  - Pain [None]
  - Headache [None]
  - Tremor [None]
  - Grip strength decreased [None]
  - Muscular weakness [None]

NARRATIVE: CASE EVENT DATE: 20190808
